FAERS Safety Report 6977302-8 (Version None)
Quarter: 2010Q3

REPORT INFORMATION
  Report Type: 
  Country: None (occurrence: None)
  Receive Date: 20100910
  Receipt Date: 20100831
  Transmission Date: 20110219
  Serious: Yes (Other)
  Sender: FDA-Public Use
  Company Number: US-BAYER-201027138NA

PATIENT
  Age: 78 Year
  Sex: Female

DRUGS (1)
  1. ULTRAVIST 300 [Suspect]
     Indication: COMPUTERISED TOMOGRAM ABDOMEN
     Dosage: AS USED: 100 ML  UNIT DOSE: 500 ML
     Dates: start: 20100604, end: 20100604

REACTIONS (2)
  - THROAT IRRITATION [None]
  - URTICARIA [None]
